FAERS Safety Report 23777961 (Version 4)
Quarter: 2024Q2

REPORT INFORMATION
  Report Type: Spontaneous
  Country: KR (occurrence: KR)
  Receive Date: 20240424
  Receipt Date: 20240528
  Transmission Date: 20240716
  Serious: Yes (Life-Threatening, Hospitalization, Other)
  Sender: FDA-Public Use
  Company Number: KR-SAMSUNG BIOEPIS-SB-2024-12148

PATIENT
  Age: 70 Year
  Sex: Male

DRUGS (13)
  1. BEVACIZUMAB [Suspect]
     Active Substance: BEVACIZUMAB
     Indication: Gastric cancer
     Dosage: 100MG/4ML
     Route: 042
     Dates: start: 20231228
  2. BEVACIZUMAB [Suspect]
     Active Substance: BEVACIZUMAB
     Dosage: 400MG/16ML
     Route: 042
     Dates: start: 20231228
  3. TRASTUZUMAB [Suspect]
     Active Substance: TRASTUZUMAB
     Indication: Gastric cancer
     Route: 042
     Dates: start: 20231228
  4. TRASTUZUMAB [Suspect]
     Active Substance: TRASTUZUMAB
     Route: 042
     Dates: start: 20231228
  5. Symbalta [Concomitant]
     Indication: Prophylaxis
     Route: 065
  6. MOSAPRIDE CITRATE [Concomitant]
     Active Substance: MOSAPRIDE CITRATE
     Indication: Prophylaxis
     Route: 065
     Dates: start: 20230626, end: 20231228
  7. Feroba-you [Concomitant]
     Indication: Anaemia
     Route: 065
  8. NEUPOGEN [Concomitant]
     Active Substance: FILGRASTIM
     Indication: Antineutrophil cytoplasmic antibody decreased
     Route: 065
  9. CETIZAL [Concomitant]
     Indication: Urticaria
     Route: 065
  10. TWOLION [Concomitant]
     Indication: Urticaria
     Route: 065
  11. FURIX [Concomitant]
     Indication: Prophylaxis
     Route: 065
     Dates: start: 20240125, end: 20240307
  12. MONTMORILLONITE [Concomitant]
     Active Substance: MONTMORILLONITE
     Indication: Diarrhoea
     Dosage: 3G/20ML
     Route: 065
     Dates: start: 20240404, end: 20240414
  13. LOPERAMIDE [Concomitant]
     Active Substance: LOPERAMIDE
     Indication: Diarrhoea
     Route: 065
     Dates: start: 20240404, end: 20240414

REACTIONS (11)
  - Gastric perforation [Recovered/Resolved]
  - Abdominal pain [Not Recovered/Not Resolved]
  - C-reactive protein increased [Not Recovered/Not Resolved]
  - Intra-abdominal fluid collection [Unknown]
  - Condition aggravated [Unknown]
  - Cholecystitis [Recovered/Resolved with Sequelae]
  - Pyrexia [Recovered/Resolved with Sequelae]
  - Nausea [Recovered/Resolved with Sequelae]
  - Vomiting [Recovered/Resolved with Sequelae]
  - Abdominal pain upper [Recovered/Resolved]
  - Off label use [Unknown]

NARRATIVE: CASE EVENT DATE: 20240415
